FAERS Safety Report 8557818-3 (Version None)
Quarter: 2012Q3

REPORT INFORMATION
  Report Type: 
  Country: None (occurrence: None)
  Receive Date: 20120801
  Receipt Date: 20120723
  Transmission Date: 20120928
  Serious: Yes (Hospitalization)
  Sender: FDA-Public Use
  Company Number: US-GLAXOSMITHKLINE-A0876582A

PATIENT
  Age: 58 Year
  Sex: Male

DRUGS (2)
  1. AVANDIA [Suspect]
     Indication: DIABETES MELLITUS
     Route: 048
     Dates: start: 20060222, end: 20070512
  2. AVANDAMET [Suspect]
     Indication: DIABETES MELLITUS
     Route: 048
     Dates: start: 20050830, end: 20060222

REACTIONS (11)
  - MYOCARDIAL ISCHAEMIA [None]
  - SCAR [None]
  - CORONARY ARTERY DISEASE [None]
  - ANXIETY [None]
  - MYOCARDIAL INFARCTION [None]
  - INJURY [None]
  - ARRHYTHMIA [None]
  - ECONOMIC PROBLEM [None]
  - LOSS OF CONSCIOUSNESS [None]
  - SYNCOPE [None]
  - DEFORMITY [None]
